FAERS Safety Report 9017176 (Version 2)
Quarter: 2013Q1

REPORT INFORMATION
  Report Type: Spontaneous
  Country: FR (occurrence: FR)
  Receive Date: 20130117
  Receipt Date: 20130131
  Transmission Date: 20140127
  Serious: Yes (Hospitalization)
  Sender: FDA-Public Use
  Company Number: FR-ABBOTT-13P-056-1036215-00

PATIENT
  Age: 80 Year
  Sex: Female

DRUGS (8)
  1. DEPAKOTE [Suspect]
     Indication: BIPOLAR DISORDER
     Dosage: 250 MILLIGRAM(S); TWICE A DAY
     Route: 048
  2. ZYPREXA [Suspect]
     Indication: PRODUCT USED FOR UNKNOWN INDICATION
     Route: 048
     Dates: end: 20121113
  3. MODOPAR [Suspect]
     Indication: PRODUCT USED FOR UNKNOWN INDICATION
     Route: 048
     Dates: end: 20121104
  4. MODOPAR [Suspect]
     Route: 048
     Dates: start: 20121105
  5. TRAMADOL [Suspect]
     Indication: PAIN
     Route: 048
     Dates: start: 20121029, end: 20121113
  6. LEVOTHYROX [Concomitant]
     Indication: PRODUCT USED FOR UNKNOWN INDICATION
     Dates: start: 201211
  7. DOLIPRANE [Concomitant]
     Indication: PRODUCT USED FOR UNKNOWN INDICATION
  8. CALCIT VITAMINE D3 [Concomitant]
     Indication: PRODUCT USED FOR UNKNOWN INDICATION

REACTIONS (3)
  - Fall [Recovered/Resolved]
  - Orthostatic hypotension [Recovering/Resolving]
  - Extrapyramidal disorder [Unknown]
